FAERS Safety Report 9642595 (Version 1)
Quarter: 2013Q4

REPORT INFORMATION
  Report Type: Spontaneous
  Country: US (occurrence: US)
  Receive Date: 20131024
  Receipt Date: 20131024
  Transmission Date: 20140711
  Serious: Yes (Other)
  Sender: FDA-Public Use
  Company Number: US-PFIZER INC-2013302237

PATIENT
  Sex: Female

DRUGS (1)
  1. AROMASIN [Suspect]
     Indication: BREAST CANCER FEMALE
     Dosage: UNK, 1X/DAY
     Route: 048
     Dates: start: 20131001

REACTIONS (3)
  - Neuropathy peripheral [Unknown]
  - Vitreous floaters [Unknown]
  - Constipation [Unknown]
